FAERS Safety Report 17528025 (Version 1)
Quarter: 2020Q1

REPORT INFORMATION
  Report Type: Spontaneous
  Country: JP (occurrence: JP)
  Receive Date: 20200311
  Receipt Date: 20200311
  Transmission Date: 20200409
  Serious: Yes (Other)
  Sender: FDA-Public Use
  Company Number: JP-ASTRAZENECA-2020SE35719

PATIENT
  Age: 50 Year
  Sex: Female

DRUGS (4)
  1. BIPRESSO (QUETIAPINE FUMARATE) [Suspect]
     Active Substance: QUETIAPINE FUMARATE
     Indication: BIPOLAR DISORDER
     Route: 048
     Dates: start: 201905, end: 202002
  2. LENDORMIN [Concomitant]
     Active Substance: BROTIZOLAM
     Indication: BIPOLAR DISORDER
     Route: 048
  3. LIMAS [Concomitant]
     Active Substance: LITHIUM CARBONATE
     Indication: BIPOLAR DISORDER
     Route: 048
  4. QUETIAPINE FUMARATE. [Concomitant]
     Active Substance: QUETIAPINE FUMARATE
     Indication: BIPOLAR DISORDER
     Route: 048
     Dates: end: 201905

REACTIONS (1)
  - Neuroleptic malignant syndrome [Recovered/Resolved]

NARRATIVE: CASE EVENT DATE: 202002
